FAERS Safety Report 9624797 (Version 1)
Quarter: 2013Q4

REPORT INFORMATION
  Report Type: Spontaneous
  Country: IT (occurrence: IT)
  Receive Date: 20131015
  Receipt Date: 20131015
  Transmission Date: 20140711
  Serious: Yes (Hospitalization)
  Sender: FDA-Public Use
  Company Number: IT-MYLANLABS-2013S1022502

PATIENT
  Age: 22 Year
  Sex: Female

DRUGS (5)
  1. CITALOPRAM [Suspect]
     Route: 048
     Dates: start: 20130710, end: 20130710
  2. EN [Suspect]
     Route: 048
     Dates: start: 20130710, end: 20130710
  3. LEVOSULPIRIDE [Concomitant]
     Indication: PRODUCT USED FOR UNKNOWN INDICATION
     Route: 048
  4. TRITTICO [Concomitant]
     Indication: PRODUCT USED FOR UNKNOWN INDICATION
     Route: 048
  5. VENLAFAXINE [Concomitant]
     Indication: PRODUCT USED FOR UNKNOWN INDICATION

REACTIONS (3)
  - Overdose [Unknown]
  - Drug abuse [Unknown]
  - Sopor [Unknown]
